FAERS Safety Report 8445632-9 (Version None)
Quarter: 2012Q2

REPORT INFORMATION
  Report Type: 
  Country: None (occurrence: None)
  Receive Date: 20120323
  Receipt Date: 20110909
  Transmission Date: 20120825
  Serious: Yes (Hospitalization)
  Sender: FDA-Public Use
  Company Number: 163-21880-11063071

PATIENT
  Age: 55 Year
  Sex: Female
  Weight: 75.7507 kg

DRUGS (1)
  1. REVLIMID [Suspect]
     Indication: MULTIPLE MYELOMA
     Dosage: 10 MG, 1 IN 1 D , PO
     Route: 048
     Dates: start: 20110310, end: 20110601

REACTIONS (2)
  - PNEUMONIA [None]
  - SPINAL COMPRESSION FRACTURE [None]
